FAERS Safety Report 5503849-7 (Version None)
Quarter: 2007Q4

REPORT INFORMATION
  Report Type: 
  Country: None (occurrence: None)
  Receive Date: 20071030
  Receipt Date: 20071022
  Transmission Date: 20080405
  Serious: Yes (Other)
  Sender: FDA-Public Use
  Company Number: CHPA2007US11061

PATIENT
  Age: 5 Year
  Sex: Male

DRUGS (1)
  1. TRIAMINIC COUGH + SORE THROAT WITHOUT PSE (NCH)(DEXTROMETHORPHAN HYDRO [Suspect]
     Indication: COUGH
     Dosage: 0.5 TSP, TID, ORAL
     Route: 048
     Dates: start: 20071005, end: 20071012

REACTIONS (3)
  - DYSURIA [None]
  - HYPERSENSITIVITY [None]
  - PENILE SIZE REDUCED [None]
